FAERS Safety Report 21239120 (Version 2)
Quarter: 2022Q3

REPORT INFORMATION
  Report Type: Spontaneous
  Country: JP (occurrence: JP)
  Receive Date: 20220822
  Receipt Date: 20220915
  Transmission Date: 20221027
  Serious: Yes (Other)
  Sender: FDA-Public Use
  Company Number: JP-MSD-M2022-34181

PATIENT
  Age: 70 Year
  Sex: Female

DRUGS (5)
  1. LAGEVRIO [Suspect]
     Active Substance: MOLNUPIRAVIR
     Indication: COVID-19 treatment
     Dosage: 800 MILLIGRAM, BID
     Route: 048
     Dates: start: 20220815
  2. LEVOTHYROXINE [Concomitant]
     Active Substance: LEVOTHYROXINE
     Dosage: UNK
     Route: 065
  3. SUCRALFATE [Concomitant]
     Active Substance: SUCRALFATE
     Dosage: UNK
     Route: 065
  4. NIZATIDINE [Concomitant]
     Active Substance: NIZATIDINE
     Dosage: UNK
     Route: 065
  5. VITAMEDIN [BENFOTIAMINE;CYANOCOBALAMIN;PYRIDOXINE HYDROCHLORIDE] [Concomitant]
     Dosage: UNK
     Route: 065

REACTIONS (5)
  - Urinary retention [Unknown]
  - Pollakiuria [Unknown]
  - Hot flush [Unknown]
  - Hyperhidrosis [Unknown]
  - Insomnia [Unknown]

NARRATIVE: CASE EVENT DATE: 20220817
